FAERS Safety Report 7982232-9 (Version None)
Quarter: 2011Q4

REPORT INFORMATION
  Report Type: 
  Country: None (occurrence: None)
  Receive Date: 20111215
  Receipt Date: 20111215
  Transmission Date: 20120403
  Serious: Yes (Other)
  Sender: FDA-Public Use
  Company Number: None

PATIENT
  Age: 44 Year
  Sex: Female
  Weight: 65.77 kg

DRUGS (1)
  1. CLINDAMYCIN [Suspect]
     Indication: SINUSITIS
     Dosage: 300 MG
     Route: 048
     Dates: start: 20111130, end: 20111211

REACTIONS (1)
  - ARTHRALGIA [None]
